FAERS Safety Report 4576706-0 (Version None)
Quarter: 2005Q1

REPORT INFORMATION
  Report Type: 
  Country: None (occurrence: None)
  Receive Date: 20050207
  Receipt Date: 20050202
  Transmission Date: 20050727
  Serious: Yes (Disabling)
  Sender: FDA-Public Use
  Company Number: THAL-PR-0502S-0001

PATIENT
  Age: 61 Year
  Sex: Female

DRUGS (2)
  1. THALLOUS CHLORIDE TL 201 [Suspect]
     Dosage: SINGLE DOSE, I.V.
     Route: 042
     Dates: start: 19990101, end: 19990101
  2. ADENOSINE [Concomitant]

REACTIONS (2)
  - BLINDNESS [None]
  - OPTIC ISCHAEMIC NEUROPATHY [None]
